FAERS Safety Report 8832466 (Version 1)
Quarter: 2012Q4

REPORT INFORMATION
  Report Type: Spontaneous
  Country: US (occurrence: None)
  Receive Date: 20121005
  Receipt Date: 20121005
  Transmission Date: 20130627
  Serious: Yes (Life-Threatening, Hospitalization)
  Sender: FDA-Public Use
  Company Number: None

PATIENT
  Age: 36 Year
  Sex: Female

DRUGS (1)
  1. ZOLMITRIPTAN [Suspect]
     Indication: MIGRAINE
     Route: 048
     Dates: start: 20120726, end: 20120726

REACTIONS (4)
  - Anaphylactic reaction [None]
  - Respiratory distress [None]
  - Cold sweat [None]
  - Pallor [None]
